FAERS Safety Report 17602360 (Version 3)
Quarter: 2020Q2

REPORT INFORMATION
  Report Type: Report from Study
  Country: US (occurrence: US)
  Receive Date: 20200331
  Receipt Date: 20200507
  Transmission Date: 20200713
  Serious: Yes (Other)
  Sender: FDA-Public Use
  Company Number: US-TEVA-2020-US-1214831

PATIENT
  Age: 19 Year
  Sex: Female

DRUGS (1)
  1. CLARAVIS [Suspect]
     Active Substance: ISOTRETINOIN
     Dosage: 40 MILLIGRAM DAILY;
     Route: 065
     Dates: start: 20200106, end: 20200206

REACTIONS (2)
  - Unintended pregnancy [Unknown]
  - Gonorrhoea [Unknown]

NARRATIVE: CASE EVENT DATE: 20200327
